FAERS Safety Report 4645160-2 (Version None)
Quarter: 2005Q2

REPORT INFORMATION
  Report Type: 
  Country: None (occurrence: None)
  Receive Date: 20050331
  Receipt Date: 20041202
  Transmission Date: 20051028
  Serious: No
  Sender: FDA-Public Use
  Company Number: 04P-163-0282371

PATIENT
  Age: 49 Year
  Sex: Female

DRUGS (4)
  1. HUMIRA [Suspect]
     Indication: RHEUMATOID ARTHRITIS
     Dosage: 40 MG, SUBCUTANEOUS
     Route: 058
  2. CELECOXIB [Concomitant]
  3. TRAMADOL HCL [Concomitant]
  4. ZOLPIDEM TARTRATE [Concomitant]

REACTIONS (1)
  - INJECTION SITE HAEMORRHAGE [None]
